FAERS Safety Report 9159832 (Version 2)
Quarter: 2013Q1

REPORT INFORMATION
  Report Type: Spontaneous
  Country: US (occurrence: None)
  Receive Date: 20130220
  Receipt Date: 20130321
  Transmission Date: 20140127
  Serious: Yes (Hospitalization)
  Sender: FDA-Public Use
  Company Number: UTC-029175

PATIENT
  Age: 75 Year
  Sex: Female
  Weight: 103.1 kg

DRUGS (1)
  1. TYVASO (6 MICROGRAM, AEROSOL FOR INHALATION)(TREPROSTINIL SODIUM) [Suspect]
     Indication: PULMONARY ARTERIAL HYPERTENSION
     Route: 055
     Dates: start: 20130206

REACTIONS (6)
  - Syncope [None]
  - Dizziness [None]
  - Loss of consciousness [None]
  - Asthenia [None]
  - Orthostatic hypotension [None]
  - Hypoxia [None]
